FAERS Safety Report 4527916-X (Version None)
Quarter: 2004Q4

REPORT INFORMATION
  Report Type: 
  Country: None (occurrence: None)
  Receive Date: 20041215
  Receipt Date: 20041208
  Transmission Date: 20050328
  Serious: Yes (Hospitalization, Other)
  Sender: FDA-Public Use
  Company Number: FR-BRISTOL-MYERS SQUIBB COMPANY-12794723

PATIENT
  Age: 59 Year
  Sex: Male

DRUGS (1)
  1. LYSODREN [Suspect]
     Indication: ADRENAL CARCINOMA
     Route: 048
     Dates: start: 20030301, end: 20030606

REACTIONS (7)
  - ABDOMINAL DISCOMFORT [None]
  - ANOREXIA [None]
  - ASTHENIA [None]
  - ENCEPHALOPATHY [None]
  - NAUSEA [None]
  - VOMITING [None]
  - WEIGHT DECREASED [None]
